FAERS Safety Report 19158529 (Version 5)
Quarter: 2021Q2

REPORT INFORMATION
  Report Type: Spontaneous
  Country: ES (occurrence: ES)
  Receive Date: 20210420
  Receipt Date: 20210625
  Transmission Date: 20210717
  Serious: Yes (Death, Life-Threatening, Hospitalization)
  Sender: FDA-Public Use
  Company Number: ES-CELGENEUS-ESP-20210403175

PATIENT
  Age: 71 Year
  Sex: Female
  Weight: 81.5 kg

DRUGS (4)
  1. ORY?1001 [Suspect]
     Active Substance: INVESTIGATIONAL PRODUCT
     Indication: ACUTE MYELOID LEUKAEMIA
     Dosage: 90 MICROGRAM/SQ. METER
     Route: 048
     Dates: start: 20190806, end: 20190820
  2. AZACITIDINE. [Suspect]
     Active Substance: AZACITIDINE
     Indication: ACUTE MYELOID LEUKAEMIA
     Dosage: 75 MILLIGRAM/SQ. METER
     Route: 058
     Dates: start: 20190806, end: 20190812
  3. ALLOPURINOL. [Concomitant]
     Active Substance: ALLOPURINOL
     Indication: BLOOD URIC ACID
     Dosage: 300 MILLIGRAM
     Route: 065
  4. LEVOFLOXACINE [Concomitant]
     Active Substance: LEVOFLOXACIN
     Indication: PROPHYLAXIS
     Dosage: 50 MILLIGRAM
     Route: 065

REACTIONS (1)
  - Haemorrhage intracranial [Fatal]

NARRATIVE: CASE EVENT DATE: 20190827
